FAERS Safety Report 4325645-9 (Version None)
Quarter: 2004Q1

REPORT INFORMATION
  Report Type: 
  Country: None (occurrence: None)
  Receive Date: 20040329
  Receipt Date: 20040317
  Transmission Date: 20041129
  Serious: Yes (Life-Threatening, Hospitalization)
  Sender: FDA-Public Use
  Company Number: DE-BRISTOL-MYERS SQUIBB COMPANY-12534897

PATIENT
  Age: 25 Year
  Sex: Female

DRUGS (2)
  1. BLEOMYCIN [Suspect]
     Indication: HODGKIN'S DISEASE
  2. OXYGEN [Suspect]
     Indication: ANAESTHESIA

REACTIONS (1)
  - ACUTE RESPIRATORY DISTRESS SYNDROME [None]
